FAERS Safety Report 10921545 (Version 1)
Quarter: 2015Q1

REPORT INFORMATION
  Report Type: Spontaneous
  Country: US (occurrence: None)
  Receive Date: 20150313
  Receipt Date: 20150313
  Transmission Date: 20150721
  Serious: No
  Sender: FDA-Public Use
  Company Number: None

PATIENT
  Age: 48 Year
  Sex: Male

DRUGS (2)
  1. TRUVADA [Suspect]
     Active Substance: EMTRICITABINE\TENOFOVIR DISOPROXIL FUMARATE
     Indication: HIV INFECTION
     Dosage: 1 TABLET   DAILY   BY MOUTH
     Route: 048
     Dates: start: 20150101
  2. TIVICAY [Suspect]
     Active Substance: DOLUTEGRAVIR SODIUM
     Indication: HIV INFECTION
     Dosage: 1 TABLET   QD   BY MOUTH
     Route: 048
     Dates: start: 20150101

REACTIONS (3)
  - Dermatillomania [None]
  - Scratch [None]
  - Stress [None]

NARRATIVE: CASE EVENT DATE: 20150111
